FAERS Safety Report 21189317 (Version 1)
Quarter: 2022Q3

REPORT INFORMATION
  Report Type: Spontaneous
  Country: US (occurrence: None)
  Receive Date: 20220808
  Receipt Date: 20220808
  Transmission Date: 20221027
  Serious: Yes (Hospitalization)
  Sender: FDA-Public Use
  Company Number: None

PATIENT
  Age: 65 Year
  Sex: Female

DRUGS (11)
  1. DALFAMPRIDINE [Suspect]
     Active Substance: DALFAMPRIDINE
     Indication: Multiple sclerosis
     Dosage: TAKE 1 TABLET BY MOUTH TWICE DAILY?
     Dates: start: 20181206
  2. ALEVE TAB [Concomitant]
  3. BACLOFEN POW [Concomitant]
  4. CALCIUM [Concomitant]
     Active Substance: CALCIUM
  5. DULOXETINE HYDROCHLORIDE [Concomitant]
     Active Substance: DULOXETINE HYDROCHLORIDE
  6. HYDROCO/APAP TAB [Concomitant]
  7. METOPROLOL TAB [Concomitant]
  8. MODAFINIL TAB [Concomitant]
  9. VITAMINS [Concomitant]
     Active Substance: VITAMINS
  10. POTASSIUM POW CHLORIDE [Concomitant]
  11. VITAMIN D3 CAP [Concomitant]

REACTIONS (4)
  - Knee arthroplasty [None]
  - Mobility decreased [None]
  - Fall [None]
  - Multiple sclerosis relapse [None]

NARRATIVE: CASE EVENT DATE: 20220801
